FAERS Safety Report 17456329 (Version 1)
Quarter: 2020Q1

REPORT INFORMATION
  Report Type: Spontaneous
  Country: NL (occurrence: NL)
  Receive Date: 20200225
  Receipt Date: 20200225
  Transmission Date: 20200409
  Serious: Yes (Other)
  Sender: FDA-Public Use
  Company Number: NL-HRAPH01-202000137

PATIENT
  Sex: Female

DRUGS (2)
  1. ELLAONE [Suspect]
     Active Substance: ULIPRISTAL ACETATE
     Indication: POST COITAL CONTRACEPTION
     Dosage: 02 INTAKES OF ELLAONE IN 01 WEEK
  2. ELLAONE [Suspect]
     Active Substance: ULIPRISTAL ACETATE
     Indication: POST COITAL CONTRACEPTION
     Dosage: 02 INTAKES OF ELLAONE IN 01 WEEK

REACTIONS (3)
  - Inappropriate schedule of product administration [Unknown]
  - Angina pectoris [Unknown]
  - Cardiac disorder [Unknown]
